FAERS Safety Report 14023911 (Version 1)
Quarter: 2017Q3

REPORT INFORMATION
  Report Type: Spontaneous
  Country: US (occurrence: US)
  Receive Date: 20170928
  Receipt Date: 20170928
  Transmission Date: 20171128
  Serious: No
  Sender: FDA-Public Use
  Company Number: US-SA-2016SA226928

PATIENT
  Age: 56 Year
  Sex: Female

DRUGS (11)
  1. FISH OIL [Concomitant]
     Active Substance: FISH OIL
  2. BACLOFEN. [Concomitant]
     Active Substance: BACLOFEN
  3. GABAPENTIN. [Concomitant]
     Active Substance: GABAPENTIN
  4. LORTAB [Concomitant]
     Active Substance: ACETAMINOPHEN\HYDROCODONE BITARTRATE
  5. VITAMIN B COMPLEX [Concomitant]
     Active Substance: CYANOCOBALAMIN\DEXPANTHENOL\NIACINAMIDE\PYRIDOXINE HYDROCHLORIDE\RIBOFLAVIN 5^-PHOSPHATE SODIUM\THIAMINE HYDROCHLORIDE\VITAMIN B COMPLEX
  6. ALEVE [Concomitant]
     Active Substance: NAPROXEN SODIUM
  7. VITAMIN D3 [Concomitant]
     Active Substance: CHOLECALCIFEROL
  8. ADVIL [Concomitant]
     Active Substance: IBUPROFEN
  9. BIOTIN [Concomitant]
     Active Substance: BIOTIN
  10. AUBAGIO [Suspect]
     Active Substance: TERIFLUNOMIDE
     Indication: MULTIPLE SCLEROSIS
     Route: 048
     Dates: start: 20160918
  11. AMPYRA [Concomitant]
     Active Substance: DALFAMPRIDINE

REACTIONS (4)
  - Musculoskeletal stiffness [Unknown]
  - Burning sensation [Unknown]
  - Peripheral swelling [Unknown]
  - Paraesthesia [Unknown]

NARRATIVE: CASE EVENT DATE: 201611
